FAERS Safety Report 9408930 (Version 1)
Quarter: 2013Q3

REPORT INFORMATION
  Report Type: Spontaneous
  Country: US (occurrence: US)
  Receive Date: 20130719
  Receipt Date: 20130719
  Transmission Date: 20140515
  Serious: Yes (Other)
  Sender: FDA-Public Use
  Company Number: US-RANBAXY-2013US-71229

PATIENT
  Age: 52 Year
  Sex: Female

DRUGS (5)
  1. FLUCONAZOLE [Suspect]
     Indication: EVIDENCE BASED TREATMENT
     Dosage: UNK
     Route: 065
  2. PHENYTOIN [Interacting]
     Indication: STATUS EPILEPTICUS
     Route: 042
  3. FOSPHENYTOIN [Interacting]
     Indication: STATUS EPILEPTICUS
     Route: 042
  4. MEROPENEM [Concomitant]
     Indication: EVIDENCE BASED TREATMENT
     Dosage: UNK
     Route: 065
  5. VANCOMYCIN [Concomitant]
     Indication: EVIDENCE BASED TREATMENT
     Dosage: UNK
     Route: 065

REACTIONS (3)
  - Drug interaction [Recovered/Resolved]
  - Electrocardiogram QRS complex prolonged [Recovered/Resolved]
  - Electrocardiogram QT prolonged [Recovered/Resolved]
